FAERS Safety Report 12557100 (Version 1)
Quarter: 2016Q3

REPORT INFORMATION
  Report Type: Spontaneous
  Country: GB (occurrence: GB)
  Receive Date: 20160714
  Receipt Date: 20160714
  Transmission Date: 20161109
  Serious: Yes (Other)
  Sender: FDA-Public Use
  Company Number: GB-TEVA-674432ACC

PATIENT
  Age: 70 Year
  Sex: Male
  Weight: 82.55 kg

DRUGS (5)
  1. CRESCENT PHARMA SIMVASTATIN [Concomitant]
  2. SILDENAFIL. [Concomitant]
     Active Substance: SILDENAFIL
  3. KETOCONAZOLE. [Concomitant]
     Active Substance: KETOCONAZOLE
  4. TRIMETHOPRIM. [Suspect]
     Active Substance: TRIMETHOPRIM
     Indication: URINARY TRACT INFECTION
     Dosage: 400 MILLIGRAM DAILY;
     Route: 048
     Dates: end: 20160620
  5. TEVA UK LANSOPRAZOLE [Concomitant]
     Active Substance: LANSOPRAZOLE

REACTIONS (3)
  - Rash maculo-papular [Not Recovered/Not Resolved]
  - Malaise [Unknown]
  - Erythema [Recovering/Resolving]

NARRATIVE: CASE EVENT DATE: 20160623
